FAERS Safety Report 10182463 (Version 2)
Quarter: 2014Q2

REPORT INFORMATION
  Report Type: Spontaneous
  Country: DE (occurrence: DE)
  Receive Date: 20140520
  Receipt Date: 20140521
  Transmission Date: 20141212
  Serious: Yes (Death, Hospitalization)
  Sender: FDA-Public Use
  Company Number: DE-JNJFOC-20140508603

PATIENT
  Age: 90 Year
  Sex: Female
  Weight: 81 kg

DRUGS (7)
  1. XARELTO [Suspect]
     Indication: ATRIAL FIBRILLATION
     Route: 048
     Dates: start: 20140305
  2. XARELTO [Suspect]
     Indication: CEREBROVASCULAR ACCIDENT PROPHYLAXIS
     Route: 048
     Dates: start: 20140305
  3. METAMIZOL [Concomitant]
     Route: 065
  4. OMEPRAZOLE [Concomitant]
     Route: 065
  5. TILIDIN [Concomitant]
     Route: 065
  6. BISOPROLOL [Concomitant]
     Route: 065
  7. FUROSEMID [Concomitant]
     Route: 065

REACTIONS (4)
  - Infarction [Fatal]
  - Anal haemorrhage [Fatal]
  - Rectal fissure [Unknown]
  - Cardiovascular disorder [Unknown]
